FAERS Safety Report 4947661-6 (Version None)
Quarter: 2006Q1

REPORT INFORMATION
  Report Type: 
  Country: None (occurrence: None)
  Receive Date: 20060317
  Receipt Date: 20060317
  Transmission Date: 20060701
  Serious: No
  Sender: FDA-Public Use
  Company Number: None

PATIENT
  Sex: Female
  Weight: 75.7507 kg

DRUGS (2)
  1. TRIZIVIR [Suspect]
     Indication: HIV INFECTION
     Dosage: ONE TAB OD
     Dates: start: 20041101, end: 20050401
  2. VIREAD [Concomitant]

REACTIONS (5)
  - ASTHENIA [None]
  - DRUG HYPERSENSITIVITY [None]
  - MALAISE [None]
  - PYREXIA [None]
  - VOMITING [None]
